FAERS Safety Report 5497659-7 (Version None)
Quarter: 2007Q4

REPORT INFORMATION
  Report Type: 
  Country: None (occurrence: None)
  Receive Date: 20071025
  Receipt Date: 20070131
  Transmission Date: 20080405
  Serious: No
  Sender: FDA-Public Use
  Company Number: A0637813A

PATIENT
  Age: 66 Year
  Sex: Male

DRUGS (6)
  1. ADVAIR DISKUS 100/50 [Suspect]
     Indication: CHRONIC OBSTRUCTIVE PULMONARY DISEASE
     Dosage: 1PUFF TWICE PER DAY
     Route: 055
     Dates: start: 20061101
  2. METOPROLOL TARTRATE [Concomitant]
  3. LISINOPRIL [Concomitant]
  4. TRIAMTERENE [Concomitant]
  5. OXYCODONE HCL [Concomitant]
  6. METHADONE HCL [Concomitant]

REACTIONS (2)
  - ASTHENIA [None]
  - DYSPHONIA [None]
